FAERS Safety Report 4290008-1 (Version None)
Quarter: 2004Q1

REPORT INFORMATION
  Report Type: 
  Country: None (occurrence: None)
  Receive Date: 20040210
  Receipt Date: 20030716
  Transmission Date: 20041129
  Serious: Yes (Hospitalization, Disabling, Other)
  Sender: FDA-Public Use
  Company Number: WAES 0307USA02048

PATIENT
  Age: 46 Year
  Sex: Male
  Weight: 100 kg

DRUGS (8)
  1. PERCOCET [Suspect]
  2. ALCOHOL [Suspect]
  3. XANAX [Suspect]
  4. SOMA [Concomitant]
  5. ADVIL [Concomitant]
  6. IMDUR [Concomitant]
     Dates: end: 20021109
  7. VIOXX [Suspect]
     Indication: BACK PAIN
     Route: 048
     Dates: start: 20010101, end: 20020328
  8. AMBIEN [Suspect]

REACTIONS (28)
  - ACUTE MYOCARDIAL INFARCTION [None]
  - ALCOHOL POISONING [None]
  - ARTHROPOD STING [None]
  - BLOOD CALCIUM DECREASED [None]
  - CARDIAC FAILURE [None]
  - CORONARY ARTERY ATHEROSCLEROSIS [None]
  - CORONARY ARTERY DISEASE [None]
  - DEPRESSION [None]
  - DIABETES MELLITUS [None]
  - DYSPNOEA EXERTIONAL [None]
  - EJECTION FRACTION DECREASED [None]
  - GASTROOESOPHAGEAL REFLUX DISEASE [None]
  - HAEMATOCRIT DECREASED [None]
  - HAEMOGLOBIN DECREASED [None]
  - HYPERCHOLESTEROLAEMIA [None]
  - HYPERLIPIDAEMIA [None]
  - HYPERTENSION [None]
  - HYPOKALAEMIA [None]
  - INTENTIONAL OVERDOSE [None]
  - MAJOR DEPRESSION [None]
  - MYOCARDIAL INFARCTION [None]
  - RED BLOOD CELL COUNT DECREASED [None]
  - SPONDYLITIS [None]
  - STENT OCCLUSION [None]
  - SUICIDE ATTEMPT [None]
  - SWELLING FACE [None]
  - TOOTH DISORDER [None]
  - TREATMENT NONCOMPLIANCE [None]
